FAERS Safety Report 5208809-1 (Version None)
Quarter: 2007Q1

REPORT INFORMATION
  Report Type: 
  Country: None (occurrence: None)
  Receive Date: 20070116
  Receipt Date: 20070108
  Transmission Date: 20070707
  Serious: Yes (Hospitalization, Other)
  Sender: FDA-Public Use
  Company Number: DE-ELI_LILLY_AND_COMPANY-DE200701002050

PATIENT
  Age: 71 Year
  Sex: Female

DRUGS (4)
  1. GEMZAR [Suspect]
     Indication: BLADDER CANCER
     Dosage: 1500 MG, UNK
     Route: 042
     Dates: start: 20061127
  2. GEMZAR [Suspect]
     Dosage: 1150 MG, UNK
     Route: 042
  3. CISPLATIN [Concomitant]
     Dosage: 110 MG, UNK
     Route: 042
  4. CARBOPLATIN [Concomitant]
     Dosage: 450 MG, UNK
     Route: 042

REACTIONS (5)
  - DEEP VEIN THROMBOSIS [None]
  - INFLUENZA LIKE ILLNESS [None]
  - LEUKOPENIA [None]
  - THROMBOCYTOPENIA [None]
  - VASCULITIS NECROTISING [None]
